FAERS Safety Report 14029203 (Version 2)
Quarter: 2020Q1

REPORT INFORMATION
  Report Type: Spontaneous
  Country: US (occurrence: US)
  Receive Date: 20171002
  Receipt Date: 20200221
  Transmission Date: 20200409
  Serious: No
  Sender: FDA-Public Use
  Company Number: US-JAZZ-2017-US-010723

PATIENT
  Age: 37 Year
  Sex: Male

DRUGS (11)
  1. ARNUITY ELLIPTA [Concomitant]
     Active Substance: FLUTICASONE FUROATE
  2. XYREM [Suspect]
     Active Substance: SODIUM OXYBATE
     Dosage: 4.5 G, BID
     Route: 048
     Dates: start: 201708, end: 2017
  3. NORVASC [Concomitant]
     Active Substance: AMLODIPINE BESYLATE
  4. NEURONTIN [Concomitant]
     Active Substance: GABAPENTIN
  5. CLEOCIN T [Concomitant]
     Active Substance: CLINDAMYCIN PHOSPHATE
  6. NIZORAL [Concomitant]
     Active Substance: KETOCONAZOLE
  7. CUVITRU [Concomitant]
     Active Substance: HUMAN IMMUNOGLOBULIN G
  8. XYREM [Suspect]
     Active Substance: SODIUM OXYBATE
     Dosage: DOSE ADJUSTMENT
     Dates: start: 201707, end: 201708
  9. MODAFINIL. [Concomitant]
     Active Substance: MODAFINIL
  10. XYREM [Suspect]
     Active Substance: SODIUM OXYBATE
     Indication: NARCOLEPSY
     Dosage: 2.25G, BID
     Route: 048
     Dates: start: 201707, end: 201707
  11. SALBUTAMOL [Concomitant]
     Active Substance: ALBUTEROL

REACTIONS (1)
  - Irritability [Unknown]

NARRATIVE: CASE EVENT DATE: 201707
